FAERS Safety Report 5649686-4 (Version None)
Quarter: 2008Q1

REPORT INFORMATION
  Report Type: 
  Country: None (occurrence: None)
  Receive Date: 20080304
  Receipt Date: 20080226
  Transmission Date: 20080703
  Serious: Yes (Hospitalization)
  Sender: FDA-Public Use
  Company Number: US-BOEHRINGER INGELHEIM GMBH, GERMANY-2008-BP-02893BP

PATIENT
  Sex: Female

DRUGS (13)
  1. SPIRIVA [Suspect]
     Indication: CHRONIC OBSTRUCTIVE PULMONARY DISEASE
     Route: 055
     Dates: start: 20070601
  2. ASPIRIN [Concomitant]
  3. PILOCARPINE [Concomitant]
  4. PREDNISOLONE ACETATE [Concomitant]
  5. OXYGEN [Concomitant]
  6. COMBIVENT [Concomitant]
  7. LISINOPRIL [Concomitant]
  8. LASIX [Concomitant]
  9. SPIROLACTONE [Concomitant]
  10. PLAVIX [Concomitant]
  11. LIPITOR [Concomitant]
  12. XANAX [Concomitant]
  13. NITROGLYCERIN [Concomitant]
     Dosage: PRN

REACTIONS (5)
  - AGEUSIA [None]
  - ANOREXIA [None]
  - CONSTIPATION [None]
  - MYOCARDIAL INFARCTION [None]
  - VISUAL ACUITY REDUCED [None]
